FAERS Safety Report 18194911 (Version 1)
Quarter: 2020Q3

REPORT INFORMATION
  Report Type: Report from Study
  Country: FR (occurrence: FR)
  Receive Date: 20200825
  Receipt Date: 20200825
  Transmission Date: 20201104
  Serious: Yes (Other)
  Sender: FDA-Public Use
  Company Number: FR-GLAXOSMITHKLINE-FR2020EME108904

PATIENT
  Sex: Female
  Weight: 40 kg

DRUGS (3)
  1. BELANTAMAB MAFODOTIN. [Suspect]
     Active Substance: BELANTAMAB MAFODOTIN
     Indication: PLASMA CELL MYELOMA
     Dosage: UNK
     Dates: start: 20200210
  2. BELANTAMAB MAFODOTIN. [Suspect]
     Active Substance: BELANTAMAB MAFODOTIN
     Dosage: 1.5 MG/KG
     Dates: start: 20200629
  3. BELANTAMAB MAFODOTIN. [Suspect]
     Active Substance: BELANTAMAB MAFODOTIN
     Dosage: UNK
     Dates: start: 20200302

REACTIONS (2)
  - Ophthalmological examination abnormal [Unknown]
  - Corneal toxicity [Recovered/Resolved]

NARRATIVE: CASE EVENT DATE: 20200812
